FAERS Safety Report 7632721-1 (Version None)
Quarter: 2011Q3

REPORT INFORMATION
  Report Type: 
  Country: None (occurrence: None)
  Receive Date: 20110725
  Receipt Date: 20101207
  Transmission Date: 20111222
  Serious: No
  Sender: FDA-Public Use
  Company Number: US-BRISTOL-MYERS SQUIBB COMPANY-15428519

PATIENT
  Age: 79 Year
  Sex: Female
  Weight: 66 kg

DRUGS (14)
  1. AMIODARONE HCL [Concomitant]
  2. METOPROLOL TARTRATE [Concomitant]
  3. OMEPRAZOLE [Concomitant]
  4. CLONIDINE [Concomitant]
  5. VITAMIN E [Concomitant]
  6. POTASSIUM [Concomitant]
  7. FERROUS GLUCONATE [Concomitant]
  8. DOXAZOSIN MESYLATE [Concomitant]
  9. PRAVACHOL [Concomitant]
  10. GLIPIZIDE [Concomitant]
  11. LASIX [Concomitant]
  12. COUMADIN [Suspect]
  13. LEVOTHYROXINE SODIUM [Concomitant]
  14. ESTRADIOL [Concomitant]

REACTIONS (3)
  - ARTHRALGIA [None]
  - NAUSEA [None]
  - HEART RATE IRREGULAR [None]
